FAERS Safety Report 15930242 (Version 3)
Quarter: 2019Q2

REPORT INFORMATION
  Report Type: Spontaneous
  Country: FR (occurrence: FR)
  Receive Date: 20190207
  Receipt Date: 20190405
  Transmission Date: 20190711
  Serious: Yes (Other)
  Sender: FDA-Public Use
  Company Number: PHHY2019FR005814

PATIENT
  Age: 78 Year
  Sex: Male

DRUGS (6)
  1. BRIMONIDINE [Suspect]
     Active Substance: BRIMONIDINE TARTRATE
     Indication: OPEN ANGLE GLAUCOMA
     Dosage: UNK UNK, BID
     Route: 047
     Dates: start: 2014
  2. DORZOLAMIDE TIMOLOL [Concomitant]
     Active Substance: DORZOLAMIDE
     Indication: PRODUCT USED FOR UNKNOWN INDICATION
     Route: 065
  3. NEOMYCIN. [Concomitant]
     Active Substance: NEOMYCIN
     Indication: PRODUCT USED FOR UNKNOWN INDICATION
     Route: 065
  4. DEXAMETHASONE. [Concomitant]
     Active Substance: DEXAMETHASONE
     Indication: PRODUCT USED FOR UNKNOWN INDICATION
     Route: 065
  5. PILOCARPINE. [Concomitant]
     Active Substance: PILOCARPINE
     Indication: PRODUCT USED FOR UNKNOWN INDICATION
     Route: 065
  6. LATANOPROST. [Concomitant]
     Active Substance: LATANOPROST
     Indication: PRODUCT USED FOR UNKNOWN INDICATION
     Route: 065

REACTIONS (10)
  - Concomitant disease aggravated [Unknown]
  - Drug intolerance [Recovered/Resolved]
  - Blepharitis [Unknown]
  - Ocular surface disease [Unknown]
  - Intraocular pressure increased [Unknown]
  - Pruritus [Recovered/Resolved]
  - Conjunctivitis [Recovered/Resolved]
  - Hyperaemia [Recovering/Resolving]
  - Toxicity to various agents [Unknown]
  - Urticaria [Recovered/Resolved]
